FAERS Safety Report 7393189-6 (Version None)
Quarter: 2011Q2

REPORT INFORMATION
  Report Type: 
  Country: None (occurrence: None)
  Receive Date: 20110404
  Receipt Date: 20110321
  Transmission Date: 20111010
  Serious: Yes (Other)
  Sender: FDA-Public Use
  Company Number: CH-MYLANLABS-2011S1006740

PATIENT
  Age: 56 Month

DRUGS (2)
  1. HEPARIN SODIUM [Concomitant]
  2. MELPHALAN [Suspect]
     Indication: INTRAOCULAR RETINOBLASTOMA
     Dosage: X 3 INJECTIONS
     Route: 013

REACTIONS (2)
  - RETINAL DETACHMENT [None]
  - POLYPOIDAL CHOROIDAL VASCULOPATHY [None]
